FAERS Safety Report 19397822 (Version 1)
Quarter: 2021Q2

REPORT INFORMATION
  Report Type: Spontaneous
  Country: US (occurrence: US)
  Receive Date: 20210608
  Receipt Date: 20210608
  Transmission Date: 20210717
  Serious: Yes (Hospitalization, Other)
  Sender: FDA-Public Use
  Company Number: None

PATIENT
  Sex: Female

DRUGS (1)
  1. SOLU?MEDROL [Suspect]
     Active Substance: METHYLPREDNISOLONE SODIUM SUCCINATE
     Indication: MULTIPLE SCLEROSIS
     Dosage: ?          QUANTITY:1 INJECTION(S);OTHER FREQUENCY:DAILY;?
     Route: 042
     Dates: start: 20210607, end: 20210608

REACTIONS (3)
  - Product quality issue [None]
  - Hypersensitivity [None]
  - Blood pressure systolic decreased [None]

NARRATIVE: CASE EVENT DATE: 20210607
